FAERS Safety Report 8306453-0 (Version None)
Quarter: 2012Q2

REPORT INFORMATION
  Report Type: 
  Country: None (occurrence: None)
  Receive Date: 20120424
  Receipt Date: 20120413
  Transmission Date: 20120825
  Serious: Yes (Other)
  Sender: FDA-Public Use
  Company Number: GB-ACCORD-005051

PATIENT
  Age: 52 Year
  Sex: Female

DRUGS (2)
  1. ZOMETA [Suspect]
     Dosage: 6WEEKLY-12 WEEKLY
     Route: 042
     Dates: start: 20070601
  2. LETROZOLE [Suspect]
     Dosage: 2.5 MG, UNK
     Route: 048
     Dates: start: 20070501

REACTIONS (6)
  - OSTEONECROSIS OF JAW [None]
  - BACK PAIN [None]
  - IMPAIRED HEALING [None]
  - NEOPLASM MALIGNANT [None]
  - CARDIAC SARCOIDOSIS [None]
  - OFF LABEL USE [None]
